FAERS Safety Report 4282954-X (Version None)
Quarter: 2004Q1

REPORT INFORMATION
  Report Type: 
  Country: None (occurrence: None)
  Receive Date: 20040130
  Receipt Date: 20031128
  Transmission Date: 20041129
  Serious: Yes (Hospitalization)
  Sender: FDA-Public Use
  Company Number: PHEH2003US10988

PATIENT
  Sex: Female

DRUGS (4)
  1. DIOVAN [Suspect]
     Indication: HYPERTENSION
     Dosage: 80 MG, QD
     Route: 048
     Dates: start: 20031101, end: 20031128
  2. ATIVAN [Concomitant]
     Indication: SLEEP DISORDER
  3. LEVOXYL [Concomitant]
     Indication: HYPOTHYROIDISM
  4. DARVOCET-N 100 [Concomitant]
     Indication: MIGRAINE

REACTIONS (7)
  - ARRHYTHMIA [None]
  - ASTHENIA [None]
  - BLOOD PRESSURE INADEQUATELY CONTROLLED [None]
  - DIARRHOEA [None]
  - DIZZINESS [None]
  - MIGRAINE [None]
  - SLEEP DISORDER DUE TO GENERAL MEDICAL CONDITION, MIXED TYPE [None]
